FAERS Safety Report 8224938-2 (Version None)
Quarter: 2012Q1

REPORT INFORMATION
  Report Type: 
  Country: None (occurrence: None)
  Receive Date: 20120319
  Receipt Date: 20120301
  Transmission Date: 20120608
  Serious: Yes (Hospitalization)
  Sender: FDA-Public Use
  Company Number: 024743

PATIENT
  Age: 62 Year
  Sex: Female
  Weight: 52.3 kg

DRUGS (11)
  1. MS HOT PACK (CAMPHOR, CAPSICUM OLEORESIN, METHYL SALICYLATE) [Concomitant]
  2. KINEDAK (EPALRESTAT) [Concomitant]
  3. AMLODIN OD (AMLODIPINE BESILATE) [Concomitant]
  4. LAXOBERON (SODIUM PICOSULFATE) [Concomitant]
  5. ZEPOLAS (FLURBIPROFEN) [Concomitant]
  6. TRUSOPT [Concomitant]
  7. MIGLITOL [Concomitant]
  8. LIPITOR [Concomitant]
  9. TICLOPIDINE HCL [Concomitant]
  10. NOVOLIN N [Concomitant]
  11. PEGAPTANIB SODIUM (PEGAPTANIB SODIUM) UNKNOWN [Suspect]
     Indication: DIABETIC RETINAL OEDEMA
     Dosage: 0.3MG, INTRAOCULAR
     Route: 031
     Dates: start: 20110926, end: 20120130

REACTIONS (1)
  - CEREBRAL INFARCTION [None]
